FAERS Safety Report 24109490 (Version 1)
Quarter: 2024Q3

REPORT INFORMATION
  Report Type: Spontaneous
  Country: US (occurrence: None)
  Receive Date: 20240717
  Receipt Date: 20240717
  Transmission Date: 20241016
  Serious: Yes (Death)
  Sender: Public
  Company Number: None

PATIENT
  Age: 61 Year
  Sex: Female
  Weight: 45.6 kg

DRUGS (22)
  1. BOSULIF [Suspect]
     Active Substance: BOSUTINIB MONOHYDRATE
     Indication: Chronic myeloid leukaemia
     Dosage: FREQUENCY : DAILY;?
     Route: 048
     Dates: start: 20230531
  2. ACETAMINOPHEN [Concomitant]
     Active Substance: ACETAMINOPHEN
  3. ALBUTEROL [Concomitant]
     Active Substance: ALBUTEROL
  4. ASPIRIN [Concomitant]
     Active Substance: ASPIRIN
  5. POTASSIUM [Concomitant]
     Active Substance: POTASSIUM
  6. BOSULIF [Concomitant]
     Active Substance: BOSUTINIB MONOHYDRATE
  7. TOPIRAMATE [Concomitant]
     Active Substance: TOPIRAMATE
  8. DIGOXIN [Concomitant]
     Active Substance: DIGOXIN
  9. ONDANSETRON [Concomitant]
     Active Substance: ONDANSETRON
  10. PYRIDOSTIGMINE [Concomitant]
     Active Substance: PYRIDOSTIGMINE
  11. ESCITALOPRAM [Concomitant]
     Active Substance: ESCITALOPRAM OXALATE
  12. OMEPRAZOLE [Concomitant]
     Active Substance: OMEPRAZOLE
  13. FUROSEMIDE [Concomitant]
     Active Substance: FUROSEMIDE
  14. MIRTAZAPINE [Concomitant]
     Active Substance: MIRTAZAPINE
  15. NITROTSTAT [Concomitant]
  16. ACETAMINOPHEN\HYDROCODONE [Concomitant]
     Active Substance: ACETAMINOPHEN\HYDROCODONE
  17. LACTULOSE [Concomitant]
     Active Substance: LACTULOSE
  18. MAX-OXIDE [Concomitant]
  19. METOPROLOL [Concomitant]
     Active Substance: METOPROLOL
  20. LOPERAMIDE [Concomitant]
     Active Substance: LOPERAMIDE
  21. LORAZEPAM [Concomitant]
     Active Substance: LORAZEPAM
  22. LOSARTAN [Concomitant]
     Active Substance: LOSARTAN

REACTIONS (1)
  - Death [None]

NARRATIVE: CASE EVENT DATE: 20240702
